FAERS Safety Report 4380317-X (Version None)
Quarter: 2004Q2

REPORT INFORMATION
  Report Type: 
  Country: None (occurrence: None)
  Receive Date: 20040616
  Receipt Date: 20040616
  Transmission Date: 20050107
  Serious: No
  Sender: FDA-Public Use
  Company Number: None

PATIENT
  Age: 31 Year
  Sex: Female
  Weight: 73.4827 kg

DRUGS (2)
  1. CEPHALEXIN [Suspect]
     Indication: CELLULITIS
     Dosage: PO 500 MG TID
     Route: 048
  2. CLEOCIN [Concomitant]

REACTIONS (2)
  - ERYTHEMA [None]
  - RASH MACULAR [None]
